FAERS Safety Report 4520350-8 (Version None)
Quarter: 2004Q4

REPORT INFORMATION
  Report Type: 
  Country: None (occurrence: None)
  Receive Date: 20041207
  Receipt Date: 20041129
  Transmission Date: 20050328
  Serious: Yes (Hospitalization)
  Sender: FDA-Public Use
  Company Number: SE-GLAXOSMITHKLINE-B0359055A

PATIENT
  Age: 40 Year
  Sex: Female

DRUGS (3)
  1. ZYBAN [Suspect]
     Indication: SMOKING CESSATION THERAPY
     Dosage: 150MG PER DAY
     Route: 048
     Dates: start: 20041005, end: 20041005
  2. ZOLOFT [Concomitant]
     Route: 065
  3. LANSOPRAZOLE [Concomitant]
     Route: 065

REACTIONS (6)
  - ANGIONEUROTIC OEDEMA [None]
  - ERYTHEMA [None]
  - FEELING HOT [None]
  - PARAESTHESIA [None]
  - SENSATION OF FOREIGN BODY [None]
  - SWELLING FACE [None]
